FAERS Safety Report 18002037 (Version 1)
Quarter: 2020Q3

REPORT INFORMATION
  Report Type: Spontaneous
  Country: FR (occurrence: FR)
  Receive Date: 20200709
  Receipt Date: 20200709
  Transmission Date: 20201103
  Serious: Yes (Life-Threatening)
  Sender: FDA-Public Use
  Company Number: FR-MYLANLABS-2020M1061181

PATIENT
  Age: 57 Year
  Sex: Female
  Weight: 113 kg

DRUGS (2)
  1. AMOXICILLINE                       /00249601/ [Suspect]
     Active Substance: AMOXICILLIN
     Indication: ENCEPHALITIS
     Dosage: 1 ? 2 G UNE FOIS TOUTES LES 4 ? 6 HEURES
     Route: 042
     Dates: start: 20200530, end: 20200602
  2. ACICLOVIR [Suspect]
     Active Substance: ACYCLOVIR
     Indication: ENCEPHALITIS
     Dosage: 10 MILLIGRAM/KILOGRAM, Q8H
     Route: 042
     Dates: start: 20200530, end: 20200603

REACTIONS (3)
  - Hyperkalaemia [Recovered/Resolved]
  - Acute kidney injury [Recovered/Resolved]
  - Overdose [Recovered/Resolved]

NARRATIVE: CASE EVENT DATE: 202006
